FAERS Safety Report 14313423 (Version 1)
Quarter: 2017Q4

REPORT INFORMATION
  Report Type: Spontaneous
  Country: US (occurrence: US)
  Receive Date: 20171221
  Receipt Date: 20171221
  Transmission Date: 20180321
  Serious: Yes (Other)
  Sender: FDA-Public Use
  Company Number: US-KYOWA KIRIN-2017BKK003376

PATIENT

DRUGS (1)
  1. RECTIV [Suspect]
     Active Substance: NITROGLYCERIN
     Indication: HAEMORRHAGE
     Dosage: UNK
     Route: 065
     Dates: start: 20171207, end: 20171207

REACTIONS (3)
  - Loss of consciousness [Recovered/Resolved]
  - Product use in unapproved indication [Recovered/Resolved]
  - Headache [Recovered/Resolved]

NARRATIVE: CASE EVENT DATE: 20171207
